FAERS Safety Report 4354079-6 (Version None)
Quarter: 2004Q2

REPORT INFORMATION
  Report Type: 
  Country: None (occurrence: None)
  Receive Date: 20040430
  Receipt Date: 20040427
  Transmission Date: 20050107
  Serious: Yes (Hospitalization, Other)
  Sender: FDA-Public Use
  Company Number: THQ2002A01304

PATIENT
  Age: 73 Year
  Sex: Male

DRUGS (10)
  1. LANSOPRAZOLE [Suspect]
     Dosage: 15 MG (1 D) PER ORAL
     Route: 048
     Dates: start: 20020301, end: 20020701
  2. MODOPAR (MADOPAR) (CAPSULES) [Suspect]
     Dosage: SEE IMAGE  PER ORAL
     Route: 048
     Dates: start: 20020301, end: 20020719
  3. MODOPAR (MADOPAR) (CAPSULES) [Suspect]
     Dosage: SEE IMAGE  PER ORAL
     Route: 048
     Dates: start: 20020719
  4. PROZAC [Concomitant]
  5. KARDEGIC (ACETYLSALICYLIC LYSINE) [Concomitant]
  6. ZOLOFT [Concomitant]
  7. SOTALEX (SOTALOL HYDROCHLORIDE) (TABLETS) [Concomitant]
  8. TICLID (TICLOPIDINE HYDROCHLORIDE( (TABLETS) [Concomitant]
  9. SIMVASTATIN (SIMVASTATIN) (TABLETS) [Concomitant]
  10. TRIMETAZIDINE (TRIMETAZIDINE) (TABLETS) [Concomitant]

REACTIONS (14)
  - ANXIETY [None]
  - APATHY [None]
  - BRADYPHRENIA [None]
  - CONDITION AGGRAVATED [None]
  - DEPRESSION [None]
  - DIFFICULTY IN WALKING [None]
  - DRUG INTERACTION [None]
  - DYSKINESIA [None]
  - ENCEPHALOPATHY [None]
  - EXTRAPYRAMIDAL DISORDER [None]
  - MENTAL IMPAIRMENT [None]
  - MYOCLONUS [None]
  - PARKINSON'S DISEASE [None]
  - PSYCHOMOTOR RETARDATION [None]
